FAERS Safety Report 24588971 (Version 2)
Quarter: 2024Q4

REPORT INFORMATION
  Report Type: Spontaneous
  Country: DE (occurrence: DE)
  Receive Date: 20241107
  Receipt Date: 20241127
  Transmission Date: 20250114
  Serious: Yes (Hospitalization, Other)
  Sender: EXELIXIS
  Company Number: DE-IPSEN Group, Research and Development-2024-22034

PATIENT
  Age: 61 Year
  Sex: Male

DRUGS (3)
  1. CABOMETYX [Suspect]
     Active Substance: CABOZANTINIB S-MALATE
     Indication: Renal cell carcinoma
     Dosage: UNK
     Route: 065
     Dates: start: 202308, end: 202310
  2. CABOMETYX [Suspect]
     Active Substance: CABOZANTINIB S-MALATE
     Indication: Clear cell papillary renal cell carcinoma
     Dosage: 20 MG, QD
     Route: 065
     Dates: start: 202401, end: 202402
  3. CABOMETYX [Suspect]
     Active Substance: CABOZANTINIB S-MALATE
     Dosage: 20 MG(INDIVIDUAL 7 DAYS 20MG/DAY, 10 DAYS BREAK)
     Route: 065
     Dates: start: 202403

REACTIONS (11)
  - Cachexia [Unknown]
  - Cachexia [Unknown]
  - Anal fissure haemorrhage [Unknown]
  - Pneumonia [Unknown]
  - Pain [Unknown]
  - Nausea [Unknown]
  - Fatigue [Recovering/Resolving]
  - Anal fissure [Unknown]
  - Diarrhoea [Unknown]
  - Abdominal pain [Unknown]
  - Off label use [Unknown]

NARRATIVE: CASE EVENT DATE: 20240201
